FAERS Safety Report 14350173 (Version 2)
Quarter: 2018Q1

REPORT INFORMATION
  Report Type: Spontaneous
  Country: DE (occurrence: DE)
  Receive Date: 20180104
  Receipt Date: 20180208
  Transmission Date: 20180509
  Serious: Yes (Other)
  Sender: FDA-Public Use
  Company Number: DE-TOLMAR, INC.-2017DE017719

PATIENT
  Sex: Male

DRUGS (1)
  1. ELIGARD [Suspect]
     Active Substance: LEUPROLIDE ACETATE
     Indication: PRODUCT USED FOR UNKNOWN INDICATION
     Dosage: 45 MG, UNK
     Route: 065
     Dates: start: 2016

REACTIONS (2)
  - Drug ineffective [Unknown]
  - Prostatic specific antigen increased [Unknown]
